FAERS Safety Report 5303827-7 (Version None)
Quarter: 2007Q1

REPORT INFORMATION
  Report Type: 
  Country: None (occurrence: None)
  Receive Date: 20070201
  Receipt Date: 20061130
  Transmission Date: 20070707
  Serious: No
  Sender: FDA-Public Use
  Company Number: 2006PV026116

PATIENT
  Age: 64 Year
  Sex: Female
  Weight: 107.5025 kg

DRUGS (6)
  1. BYETTA [Suspect]
     Indication: DIABETES MELLITUS NON-INSULIN-DEPENDENT
     Dosage: 5 MCG; BID; SC
     Route: 058
     Dates: start: 20061109
  2. CAPOTEN [Concomitant]
  3. ALDACTONE [Concomitant]
  4. ATENOLOL [Concomitant]
  5. SPIRONOLACTONE [Concomitant]
  6. PROZAC [Concomitant]

REACTIONS (10)
  - BLOOD GLUCOSE DECREASED [None]
  - DIARRHOEA [None]
  - DIZZINESS [None]
  - HYPERHIDROSIS [None]
  - NAUSEA [None]
  - NERVOUSNESS [None]
  - PALPITATIONS [None]
  - SOMNOLENCE [None]
  - TREMOR [None]
  - WEIGHT DECREASED [None]
